FAERS Safety Report 5513933-X (Version None)
Quarter: 2007Q4

REPORT INFORMATION
  Report Type: 
  Country: None (occurrence: None)
  Receive Date: 20071113
  Receipt Date: 20071107
  Transmission Date: 20080405
  Serious: Yes (Disabling)
  Sender: FDA-Public Use
  Company Number: JP-SP-2007-02667

PATIENT
  Age: 70 Year
  Sex: Male

DRUGS (2)
  1. IMMUCYST [Suspect]
     Indication: BLADDER CANCER
     Route: 043
     Dates: start: 20070612, end: 20070821
  2. IMMUCYST [Suspect]
     Route: 043
     Dates: start: 20070612, end: 20070821

REACTIONS (5)
  - CHEILITIS [None]
  - DYSPHONIA [None]
  - EPIDIDYMITIS [None]
  - PRODUCTIVE COUGH [None]
  - PYREXIA [None]
